FAERS Safety Report 7722498-3 (Version None)
Quarter: 2011Q3

REPORT INFORMATION
  Report Type: 
  Country: None (occurrence: None)
  Receive Date: 20110831
  Receipt Date: 20110829
  Transmission Date: 20111222
  Serious: Yes (Death)
  Sender: FDA-Public Use
  Company Number: NO-PFIZER INC-2011200387

PATIENT
  Age: 91 Year
  Sex: Female

DRUGS (7)
  1. TRAMADOL HCL [Suspect]
     Indication: BACK PAIN
     Dosage: UNK
     Route: 048
     Dates: start: 20110216, end: 20110301
  2. FENTANYL [Suspect]
     Indication: DECUBITUS ULCER
     Dosage: 1 DF, WEEKLY
     Route: 062
     Dates: start: 20110514, end: 20110630
  3. BUPRENORPHINE [Suspect]
     Indication: DECUBITUS ULCER
     Route: 062
     Dates: start: 20110324, end: 20110514
  4. MORPHINE SULFATE [Suspect]
     Indication: DECUBITUS ULCER
     Dosage: SEVERAL TIMES A DAY
     Route: 051
     Dates: start: 20110724
  5. TRAMADOL HCL [Suspect]
     Dosage: UNK
     Dates: start: 20110324, end: 20110724
  6. FENTANYL [Suspect]
     Dosage: 1 DF, EVERY 3 DAYS
     Route: 062
     Dates: start: 20110703
  7. PANTOPRAZOLE [Concomitant]

REACTIONS (7)
  - SPEECH DISORDER [None]
  - MUSCLE RIGIDITY [None]
  - SEDATION [None]
  - RESPIRATORY ARREST [None]
  - TRISMUS [None]
  - DYSPHAGIA [None]
  - MUSCULAR WEAKNESS [None]
